FAERS Safety Report 5233190-1 (Version None)
Quarter: 2007Q1

REPORT INFORMATION
  Report Type: 
  Country: None (occurrence: None)
  Receive Date: 20070207
  Receipt Date: 20070130
  Transmission Date: 20070707
  Serious: Yes (Hospitalization, Other)
  Sender: FDA-Public Use
  Company Number: US-PFIZER INC-2007008833

PATIENT
  Sex: Male

DRUGS (1)
  1. GEODON [Suspect]
     Dosage: TEXT:UNKNOWN

REACTIONS (11)
  - AFFECT LABILITY [None]
  - ANGER [None]
  - DELUSION [None]
  - DRUG DEPENDENCE [None]
  - DRUG RESISTANCE [None]
  - HALLUCINATION [None]
  - HOMICIDAL IDEATION [None]
  - HOSTILITY [None]
  - IRRITABILITY [None]
  - MANIA [None]
  - ROAD TRAFFIC ACCIDENT [None]
